FAERS Safety Report 5779547-1 (Version None)
Quarter: 2008Q2

REPORT INFORMATION
  Report Type: 
  Country: None (occurrence: None)
  Receive Date: 20080617
  Receipt Date: 20080526
  Transmission Date: 20081010
  Serious: Yes (Death, Other)
  Sender: FDA-Public Use
  Company Number: FR200805005061

PATIENT
  Age: 54 Year
  Sex: Male

DRUGS (7)
  1. ALIMTA [Suspect]
     Indication: LUNG CANCER METASTATIC
     Dosage: 975 MG EVERY FOUR WEEKS, INTRAVENOUS
     Route: 042
     Dates: start: 20071121, end: 20080214
  2. FOLIC ACID [Concomitant]
  3. VITAMIN B12 [Concomitant]
  4. DEXAMETHASONE TAB [Concomitant]
  5. ZOMETA [Concomitant]
  6. ZOFRAN [Concomitant]
  7. DURAGESIC-100 [Concomitant]

REACTIONS (9)
  - BLOOD CULTURE POSITIVE [None]
  - ECZEMA [None]
  - FEBRILE BONE MARROW APLASIA [None]
  - HAEMOGLOBIN DECREASED [None]
  - MUCOSAL INFLAMMATION [None]
  - NEUTROPENIA [None]
  - SKIN TOXICITY [None]
  - STAPHYLOCOCCAL INFECTION [None]
  - THROMBOCYTOPENIA [None]
